FAERS Safety Report 7657226-3 (Version None)
Quarter: 2011Q3

REPORT INFORMATION
  Report Type: 
  Country: None (occurrence: None)
  Receive Date: 20110804
  Receipt Date: 20110726
  Transmission Date: 20111222
  Serious: Yes (Hospitalization, Disabling, Other)
  Sender: FDA-Public Use
  Company Number: GB-CEPHALON-2011001930

PATIENT
  Sex: Male

DRUGS (2)
  1. ARSENIC TRIOXIDE [Suspect]
     Indication: ACUTE MYELOID LEUKAEMIA
     Route: 041
     Dates: start: 20110414, end: 20110419
  2. ATRACURIUM BESYLATE [Suspect]
     Indication: ACUTE MYELOID LEUKAEMIA
     Route: 048
     Dates: start: 20110412, end: 20110421

REACTIONS (1)
  - BLINDNESS [None]
